FAERS Safety Report 15746657 (Version 2)
Quarter: 2019Q2

REPORT INFORMATION
  Report Type: Spontaneous
  Country: US (occurrence: US)
  Receive Date: 20181220
  Receipt Date: 20190403
  Transmission Date: 20190711
  Serious: No
  Sender: FDA-Public Use
  Company Number: US-PRINSTON PHARMACEUTICAL INC.-2018PRN01285

PATIENT
  Age: 81 Year
  Sex: Female
  Weight: 65.76 kg

DRUGS (2)
  1. VALSARTAN. [Suspect]
     Active Substance: VALSARTAN
     Indication: HYPERTENSION
     Dosage: 160 MG, 1X/DAY DURING THE AM
     Route: 048
     Dates: start: 20180619, end: 201811
  2. VALSARTAN. [Suspect]
     Active Substance: VALSARTAN
     Dosage: 160 MG, 1X/DAY DURING THE AM
     Route: 048
     Dates: start: 20180619, end: 201811

REACTIONS (4)
  - Recalled product administered [Recovered/Resolved]
  - Headache [Recovered/Resolved]
  - Vomiting [Recovered/Resolved]
  - Dizziness [Recovered/Resolved]

NARRATIVE: CASE EVENT DATE: 20180619
